FAERS Safety Report 6916878-3 (Version None)
Quarter: 2010Q3

REPORT INFORMATION
  Report Type: 
  Country: None (occurrence: None)
  Receive Date: 20100809
  Receipt Date: 20100809
  Transmission Date: 20110219
  Serious: Yes (Hospitalization)
  Sender: FDA-Public Use
  Company Number: None

PATIENT
  Age: 53 Year
  Sex: Male
  Weight: 73.0291 kg

DRUGS (15)
  1. BEVACIZUMAB [Suspect]
     Indication: METASTATIC MALIGNANT MELANOMA
     Dosage: 15MG/KG, IV, EVERY 3 WKS
     Route: 042
     Dates: start: 20100309
  2. BEVACIZUMAB [Suspect]
     Indication: METASTATIC MALIGNANT MELANOMA
     Dosage: 15MG/KG, IV, EVERY 3 WKS
     Route: 042
     Dates: start: 20100402
  3. BEVACIZUMAB [Suspect]
     Indication: METASTATIC MALIGNANT MELANOMA
     Dosage: 15MG/KG, IV, EVERY 3 WKS
     Route: 042
     Dates: start: 20100514
  4. IPILIMUMAB [Suspect]
     Dosage: 10MG/KG,IV,3WKS X 4, 3MOS
     Route: 042
     Dates: start: 20100309
  5. IPILIMUMAB [Suspect]
     Dosage: 10MG/KG,IV,3WKS X 4, 3MOS
     Route: 042
     Dates: start: 20100402
  6. IPILIMUMAB [Suspect]
     Dosage: 10MG/KG,IV,3WKS X 4, 3MOS
     Route: 042
     Dates: start: 20100514
  7. ADVAIR DISKUS 100/50 [Concomitant]
  8. AZITHROMYCIN [Concomitant]
  9. HYCODAN [Concomitant]
  10. HYDROXYZINE HCL [Concomitant]
  11. IMODIUM [Concomitant]
  12. PEPCID AC [Concomitant]
  13. TEMODAR [Concomitant]
  14. TESSALON [Concomitant]
  15. ZOFRAN [Concomitant]

REACTIONS (5)
  - AUTOIMMUNE HEPATITIS [None]
  - CHEST PAIN [None]
  - METASTASES TO BONE [None]
  - METASTASES TO CENTRAL NERVOUS SYSTEM [None]
  - PAIN [None]
